FAERS Safety Report 14704600 (Version 1)
Quarter: 2018Q2

REPORT INFORMATION
  Report Type: Spontaneous
  Country: FR (occurrence: FR)
  Receive Date: 20180402
  Receipt Date: 20180402
  Transmission Date: 20180711
  Serious: Yes (Other)
  Sender: FDA-Public Use
  Company Number: FR-BAYER-2018-040419

PATIENT
  Age: 25 Year
  Sex: Female
  Weight: 65 kg

DRUGS (2)
  1. MIRENA [Suspect]
     Active Substance: LEVONORGESTREL
  2. MIRENA [Suspect]
     Active Substance: LEVONORGESTREL
     Indication: CONTRACEPTION
     Dosage: 20 MCG/24HR, CONT
     Route: 015

REACTIONS (14)
  - Back pain [Recovered/Resolved]
  - Weight increased [Recovering/Resolving]
  - Abortion spontaneous [Recovered/Resolved]
  - Formication [Recovered/Resolved]
  - Vaginal discharge [Recovered/Resolved]
  - Anxiety [Recovered/Resolved]
  - Visual impairment [Not Recovered/Not Resolved]
  - Dysgeusia [Recovered/Resolved]
  - Limb discomfort [Recovering/Resolving]
  - Loss of libido [Recovered/Resolved]
  - Tachycardia [Recovered/Resolved]
  - Nausea [Recovered/Resolved]
  - Fatigue [Recovered/Resolved]
  - Hyperhidrosis [Recovering/Resolving]

NARRATIVE: CASE EVENT DATE: 201605
